FAERS Safety Report 12551949 (Version 1)
Quarter: 2016Q3

REPORT INFORMATION
  Report Type: Spontaneous
  Country: US (occurrence: US)
  Receive Date: 20160713
  Receipt Date: 20160713
  Transmission Date: 20161109
  Serious: Yes (Life-Threatening, Hospitalization)
  Sender: FDA-Public Use
  Company Number: US-ADAPT PHARMA INC-2016ADP00012

PATIENT
  Age: 27 Year
  Sex: Male

DRUGS (4)
  1. ETHANOL [Concomitant]
     Active Substance: ALCOHOL
     Dosage: UNK
     Route: 065
     Dates: start: 201606
  2. NARCAN [Suspect]
     Active Substance: NALOXONE HYDROCHLORIDE
     Indication: OVERDOSE
     Dosage: UNK, UNK
     Route: 045
     Dates: start: 20160629, end: 20160629
  3. UNKNOWN ^NARCOTIC^ DRUG [Suspect]
     Active Substance: UNSPECIFIED INGREDIENT
     Dosage: UNK, UNK
     Route: 065
     Dates: start: 201606
  4. CLONAZEPAM. [Suspect]
     Active Substance: CLONAZEPAM
     Dosage: UNK, UNK
     Route: 065
     Dates: start: 201606

REACTIONS (4)
  - Drug screen positive [None]
  - Pulse abnormal [None]
  - Terminal state [Not Recovered/Not Resolved]
  - Drug ineffective [Not Recovered/Not Resolved]

NARRATIVE: CASE EVENT DATE: 20160629
